FAERS Safety Report 8008938-3 (Version None)
Quarter: 2011Q4

REPORT INFORMATION
  Report Type: 
  Country: None (occurrence: None)
  Receive Date: 20111227
  Receipt Date: 20111216
  Transmission Date: 20120403
  Serious: Yes (Hospitalization)
  Sender: FDA-Public Use
  Company Number: IT-ROCHE-1024658

PATIENT
  Age: 77 Year
  Sex: Male

DRUGS (7)
  1. TORADOL [Suspect]
     Indication: PAIN
     Dosage: 20 MG/ML
     Route: 048
     Dates: start: 20110922, end: 20111122
  2. TERAPROST [Concomitant]
     Route: 065
  3. ESAPENT [Concomitant]
     Route: 065
  4. LASIX [Concomitant]
     Route: 065
  5. RAMIPRIL [Concomitant]
     Route: 065
  6. ASPIRIN [Suspect]
     Indication: PRODUCT USED FOR UNKNOWN INDICATION
     Route: 048
     Dates: start: 20010101, end: 20111122
  7. LOPRESSOR [Concomitant]

REACTIONS (2)
  - DUODENAL ULCER HAEMORRHAGE [None]
  - BLOOD CREATINE INCREASED [None]
